FAERS Safety Report 15968094 (Version 2)
Quarter: 2019Q1

REPORT INFORMATION
  Report Type: Spontaneous
  Country: US (occurrence: US)
  Receive Date: 20190215
  Receipt Date: 20190327
  Transmission Date: 20190418
  Serious: No
  Sender: FDA-Public Use
  Company Number: US-ASTRAZENECA-2019SE13381

PATIENT
  Sex: Male
  Weight: 113.4 kg

DRUGS (2)
  1. VENTOLIN [Concomitant]
     Active Substance: ALBUTEROL SULFATE
     Indication: ASTHMA
     Dosage: AS REQUIRED
     Route: 065
  2. SYMBICORT [Suspect]
     Active Substance: BUDESONIDE\FORMOTEROL FUMARATE DIHYDRATE
     Indication: ASTHMA
     Dosage: TWO INHALATION TWO TIMES A DAY AS REQUIRED AS REQUIRED
     Route: 055
     Dates: start: 2018

REACTIONS (7)
  - Influenza [Unknown]
  - Wheezing [Unknown]
  - Productive cough [Unknown]
  - Off label use [Unknown]
  - Asthma [Unknown]
  - Intentional device misuse [Unknown]
  - Device failure [Unknown]
